FAERS Safety Report 8739201 (Version 2)
Quarter: 2012Q4

REPORT INFORMATION
  Report Type: 
  Country: FR (occurrence: FR)
  Receive Date: 20120823
  Receipt Date: 20120904
  Transmission Date: 20130627
  Serious: Yes (Hospitalization)
  Sender: FDA-Public Use
  Company Number: FR-009507513-1208FRA007416

PATIENT

DRUGS (13)
  1. NOROXINE [Suspect]
     Indication: URINARY TRACT INFECTION
     Dosage: 400 mg, bid
     Route: 048
     Dates: start: 20120411, end: 20120417
  2. NEXAVAR [Suspect]
     Indication: HEPATIC NEOPLASM MALIGNANT
     Dosage: 400 mg, bid
     Route: 048
     Dates: start: 20120404, end: 20120413
  3. NEXAVAR [Suspect]
     Dosage: 200 mg, bid
     Route: 048
     Dates: start: 20120501, end: 20120519
  4. PARIET [Concomitant]
     Route: 048
  5. CORTANCYL [Concomitant]
     Indication: RHEUMATOID ARTHRITIS
     Route: 048
  6. ATARAX (HYDROXYZINE HYDROCHLORIDE) [Concomitant]
     Dosage: 50 mg, qd
     Route: 048
  7. TRIATEC (RAMIPRIL) [Concomitant]
     Dosage: 1.25 mg, qd
     Route: 048
  8. MONO-TILDIEM [Concomitant]
     Dosage: 200 mg, qd
     Route: 048
  9. GLIMEPIRIDE [Concomitant]
     Dosage: 2 mg, qd
     Route: 048
  10. SPECIAFOLDINE [Concomitant]
     Dosage: 5 mg, qw
     Route: 048
  11. TAHOR [Concomitant]
     Dosage: 10 mg, qd
     Route: 048
  12. NOVATREX (AZITHROMYCIN) [Concomitant]
     Dosage: 12.5 mg, qw
     Route: 048
  13. NISIS [Concomitant]
     Dosage: 160 mg, qd
     Route: 048

REACTIONS (6)
  - Vomiting [Recovered/Resolved]
  - Abdominal pain upper [Recovered/Resolved]
  - Pancreatitis acute [None]
  - Blood glucose abnormal [None]
  - General physical health deterioration [None]
  - Mental disorder [None]
